FAERS Safety Report 7756461-3 (Version None)
Quarter: 2011Q3

REPORT INFORMATION
  Report Type: 
  Country: None (occurrence: None)
  Receive Date: 20110916
  Receipt Date: 20110913
  Transmission Date: 20111222
  Serious: Yes (Other)
  Sender: FDA-Public Use
  Company Number: CA-ABBOTT-11P-028-0841114-00

PATIENT
  Sex: Female
  Weight: 72.64 kg

DRUGS (22)
  1. HUMIRA [Suspect]
     Indication: RHEUMATOID ARTHRITIS
     Route: 058
     Dates: start: 20040404
  2. TERBUTALINE SULFATE [Concomitant]
     Indication: PRODUCT USED FOR UNKNOWN INDICATION
     Route: 048
  3. EZETIMIBE [Concomitant]
     Indication: CARDIAC DISORDER
     Route: 048
  4. EZETIMIBE [Concomitant]
     Indication: BLOOD CHOLESTEROL
  5. FUROSEMIDE [Concomitant]
     Indication: CARDIAC DISORDER
     Route: 048
  6. DILTIAZEM SANDOZ [Concomitant]
     Indication: CARDIAC DISORDER
     Route: 048
  7. ASPIRIN [Concomitant]
     Indication: PRODUCT USED FOR UNKNOWN INDICATION
     Route: 048
  8. ASCORBIC ACID [Concomitant]
     Indication: VITAMIN SUPPLEMENTATION
     Route: 048
  9. CALCIUM CARBONATE [Concomitant]
     Indication: MINERAL SUPPLEMENTATION
     Route: 048
  10. SERC [Concomitant]
     Indication: NAUSEA
     Route: 048
  11. SENOKOT [Concomitant]
     Indication: LAXATIVE SUPPORTIVE CARE
     Route: 048
  12. CALCIUM/LIPITOR [Concomitant]
     Indication: BLOOD CHOLESTEROL
  13. RIVASTIGMINE TARTRATE [Concomitant]
     Indication: MEMORY IMPAIRMENT
     Route: 048
  14. VITAMIN E [Concomitant]
     Indication: VITAMIN SUPPLEMENTATION
     Route: 048
  15. ZINC [Concomitant]
     Indication: MINERAL SUPPLEMENTATION
     Route: 048
  16. ADVAIR DISKUS 100/50 [Concomitant]
     Indication: ASTHMA
     Route: 048
  17. RISEDRONATE SODIUM [Concomitant]
     Indication: PRODUCT USED FOR UNKNOWN INDICATION
     Route: 048
  18. VITAMIN D [Concomitant]
     Indication: VITAMIN SUPPLEMENTATION
     Route: 048
  19. OMEGA 3-6-9 [Concomitant]
     Indication: MEDICAL DIET
     Route: 048
  20. SODIUM FUSIDATE 2% [Concomitant]
     Indication: RASH
     Route: 061
  21. CALCIUM/LIPITOR [Concomitant]
     Indication: CARDIAC DISORDER
     Route: 048
  22. LORAZEPAM [Concomitant]
     Indication: ANXIOLYTIC THERAPY
     Route: 048

REACTIONS (4)
  - TRANSIENT ISCHAEMIC ATTACK [None]
  - FATIGUE [None]
  - CEREBROVASCULAR ACCIDENT [None]
  - MEMORY IMPAIRMENT [None]
